FAERS Safety Report 9302006 (Version 1)
Quarter: 2013Q2

REPORT INFORMATION
  Report Type: Spontaneous
  Country: DE (occurrence: DE)
  Receive Date: 20130521
  Receipt Date: 20130521
  Transmission Date: 20140414
  Serious: Yes (Hospitalization, Other)
  Sender: FDA-Public Use
  Company Number: DE-B.I. PHARMACEUTICALS,INC./RIDGEFIELD-2013-BI-13705BY

PATIENT
  Sex: Female

DRUGS (3)
  1. KINZALKOMB [Suspect]
     Indication: HYPERTENSION
     Dosage: 1 ANZ
     Route: 048
     Dates: start: 2003, end: 20130108
  2. BISOPROLOL [Concomitant]
     Dates: start: 2003
  3. FLUTICASONE PROPIONATE [Concomitant]

REACTIONS (6)
  - Exposure during pregnancy [Unknown]
  - Premature labour [Unknown]
  - Cervical incompetence [Unknown]
  - Oligohydramnios [None]
  - Caesarean section [None]
  - Breech presentation [None]
